FAERS Safety Report 7434297-0 (Version None)
Quarter: 2011Q2

REPORT INFORMATION
  Report Type: 
  Country: None (occurrence: None)
  Receive Date: 20110425
  Receipt Date: 20110419
  Transmission Date: 20111010
  Serious: No
  Sender: FDA-Public Use
  Company Number: US-PFIZER INC-2011086197

PATIENT
  Sex: Male

DRUGS (2)
  1. TIKOSYN [Suspect]
     Dosage: 0.5 MG, UNK
  2. TIKOSYN [Suspect]
     Dosage: 0.25 MG, UNK

REACTIONS (1)
  - ATRIAL FIBRILLATION [None]
